FAERS Safety Report 16579424 (Version 1)
Quarter: 2019Q3

REPORT INFORMATION
  Report Type: Spontaneous
  Country: FR (occurrence: FR)
  Receive Date: 20190716
  Receipt Date: 20190716
  Transmission Date: 20191004
  Serious: Yes (Hospitalization)
  Sender: FDA-Public Use
  Company Number: FR-009507513-1907FRA006565

PATIENT
  Age: 45 Year
  Sex: Female
  Weight: 54.2 kg

DRUGS (4)
  1. ALPRAZOLAM. [Suspect]
     Active Substance: ALPRAZOLAM
     Indication: PRODUCT USED FOR UNKNOWN INDICATION
     Dosage: 0.75MILLIGRAM,QD
     Route: 048
     Dates: end: 20190527
  2. TERCIAN [Suspect]
     Active Substance: CYAMEMAZINE
     Indication: PRODUCT USED FOR UNKNOWN INDICATION
     Dosage: 37.50 MILLIGRAM,QD
     Route: 048
     Dates: end: 20190527
  3. RISPERIDONE. [Suspect]
     Active Substance: RISPERIDONE
     Indication: MERYCISM
     Dosage: 2 MILLIGRAM, QD
     Route: 048
     Dates: start: 20190511, end: 20190525
  4. MIRTAZAPINE. [Suspect]
     Active Substance: MIRTAZAPINE
     Indication: PRODUCT USED FOR UNKNOWN INDICATION
     Dosage: 45 MILLIGRAM, QD
     Route: 048
     Dates: start: 20190425, end: 20190527

REACTIONS (1)
  - Hepatitis acute [Not Recovered/Not Resolved]

NARRATIVE: CASE EVENT DATE: 201905
